FAERS Safety Report 14705841 (Version 1)
Quarter: 2018Q2

REPORT INFORMATION
  Report Type: Spontaneous
  Country: JP (occurrence: JP)
  Receive Date: 20180402
  Receipt Date: 20180402
  Transmission Date: 20180711
  Serious: Yes (Other)
  Sender: FDA-Public Use
  Company Number: JP-PFIZER INC-2018129027

PATIENT
  Age: 74 Year
  Sex: Female

DRUGS (2)
  1. BROTIZOLAM [Concomitant]
     Active Substance: BROTIZOLAM
  2. LYRICA [Suspect]
     Active Substance: PREGABALIN

REACTIONS (1)
  - Depressed level of consciousness [Unknown]
